FAERS Safety Report 7807807-9 (Version None)
Quarter: 2011Q4

REPORT INFORMATION
  Report Type: 
  Country: None (occurrence: None)
  Receive Date: 20111011
  Receipt Date: 20111003
  Transmission Date: 20120403
  Serious: No
  Sender: FDA-Public Use
  Company Number: US-B.I. PHARMACEUTICALS,INC./RIDGEFIELD-2011-BP-17133BP

PATIENT
  Sex: Male

DRUGS (10)
  1. CITALOPRAM HYDROBROMIDE [Concomitant]
     Dosage: 20 MG
  2. KLOR-CON [Concomitant]
     Dosage: 10 MG
  3. CINNAMON [Concomitant]
     Indication: SUPPLEMENTATION THERAPY
  4. PRADAXA [Suspect]
     Dates: start: 20110602
  5. FUROSEMIDE [Concomitant]
     Dosage: 80 MG
  6. TERAZOSIN HCL [Concomitant]
     Dosage: 2 MG
  7. METFORMIN HYDROCHLORIDE [Concomitant]
     Dosage: 2000 MG
  8. PRAVASTIN [Concomitant]
     Dosage: 20 MG
  9. EYE VITAMIN [Concomitant]
     Indication: SUPPLEMENTATION THERAPY
  10. FOLIC ACID [Concomitant]
     Indication: SUPPLEMENTATION THERAPY

REACTIONS (6)
  - HAEMATOCHEZIA [None]
  - VISUAL IMPAIRMENT [None]
  - ALTERED VISUAL DEPTH PERCEPTION [None]
  - TREMOR [None]
  - SOMNOLENCE [None]
  - GAIT DISTURBANCE [None]
